FAERS Safety Report 20143155 (Version 1)
Quarter: 2021Q4

REPORT INFORMATION
  Report Type: Spontaneous
  Country: GB (occurrence: GB)
  Receive Date: 20211203
  Receipt Date: 20211203
  Transmission Date: 20220304
  Serious: Yes (Other)
  Sender: FDA-Public Use
  Company Number: GB-MHRA-EMIS-5023-630b93b9-926c-4fe5-829f-fddbac1f7898

PATIENT
  Age: 47 Year
  Sex: Female
  Weight: 94 kg

DRUGS (2)
  1. SERTRALINE [Suspect]
     Active Substance: SERTRALINE HYDROCHLORIDE
     Indication: Product used for unknown indication
     Dosage: 28 MILLIGRAM, ONE DAILY
     Route: 065
  2. ZOPICLONE [Concomitant]
     Active Substance: ZOPICLONE
     Indication: Product used for unknown indication
     Dosage: ONE TO BE TAKEN AT NIGHT WHEN REQUIRED
     Route: 065
     Dates: start: 20211013

REACTIONS (2)
  - Diarrhoea [Recovered/Resolved]
  - Intermenstrual bleeding [Recovered/Resolved]
